FAERS Safety Report 13344870 (Version 2)
Quarter: 2017Q3

REPORT INFORMATION
  Report Type: Spontaneous
  Country: US (occurrence: US)
  Receive Date: 20170317
  Receipt Date: 20170703
  Transmission Date: 20171127
  Serious: No
  Sender: FDA-Public Use
  Company Number: US-LEO PHARMA-300306

PATIENT
  Age: 65 Year
  Sex: Female

DRUGS (2)
  1. PROGESTEROL [Concomitant]
     Active Substance: PROGESTERONE
     Indication: PRODUCT USED FOR UNKNOWN INDICATION
  2. PICATO [Suspect]
     Active Substance: INGENOL MEBUTATE
     Indication: ACTINIC KERATOSIS
     Route: 061
     Dates: start: 20170301, end: 20170302

REACTIONS (15)
  - Chills [Recovered/Resolved]
  - Pseudomonas infection [Recovered/Resolved]
  - Application site vesicles [Recovered/Resolved]
  - Staphylococcal infection [Recovered/Resolved]
  - Application site burn [Recovered/Resolved]
  - Application site inflammation [Recovered/Resolved]
  - Application site discomfort [Recovered/Resolved]
  - Application site exfoliation [Recovered/Resolved]
  - Insomnia [Recovered/Resolved]
  - Application site pain [Recovered/Resolved]
  - Application site warmth [Recovered/Resolved]
  - Application site erythema [Not Recovered/Not Resolved]
  - Application site discharge [Recovered/Resolved]
  - Application site erosion [Recovered/Resolved]
  - Drug administration error [Unknown]

NARRATIVE: CASE EVENT DATE: 20170301
